FAERS Safety Report 23585677 (Version 2)
Quarter: 2024Q1

REPORT INFORMATION
  Report Type: Spontaneous
  Country: BA (occurrence: BA)
  Receive Date: 20240301
  Receipt Date: 20240313
  Transmission Date: 20240409
  Serious: Yes (Death, Other)
  Sender: FDA-Public Use
  Company Number: BA-SA-SAC20240229001569

PATIENT
  Age: 70 Year
  Sex: Female
  Weight: 85 kg

DRUGS (6)
  1. ENOXAPARIN SODIUM [Suspect]
     Active Substance: ENOXAPARIN SODIUM
     Indication: Thrombosis prophylaxis
     Dosage: 40 MG, QD
     Route: 058
     Dates: start: 20240213
  2. GLUCOPHAGE XR [Concomitant]
     Active Substance: METFORMIN HYDROCHLORIDE
     Indication: Diabetes mellitus
     Dosage: 750MG,QD
     Route: 048
  3. HYPERSIN [Concomitant]
     Indication: Hypertension
     Dosage: 8 MG,DAILY
     Route: 048
  4. GLAUMAX [LATANOPROST] [Concomitant]
     Indication: Glaucoma
     Dosage: 20+5 MG, QD
     Route: 061
  5. TRAMADOL [Concomitant]
     Active Substance: TRAMADOL\TRAMADOL HYDROCHLORIDE
     Dosage: 50 MG
     Route: 048
  6. CANCOR [Concomitant]
     Dosage: 5 MG
     Route: 065

REACTIONS (4)
  - Sudden death [Fatal]
  - Pulmonary embolism [Unknown]
  - Loss of consciousness [Unknown]
  - Drug ineffective [Unknown]

NARRATIVE: CASE EVENT DATE: 20240219
